FAERS Safety Report 14641545 (Version 1)
Quarter: 2018Q1

REPORT INFORMATION
  Report Type: Spontaneous
  Country: US (occurrence: US)
  Receive Date: 20180315
  Receipt Date: 20180315
  Transmission Date: 20180509
  Serious: Yes (Disabling, Other)
  Sender: FDA-Public Use
  Company Number: None

PATIENT
  Age: 26 Year
  Sex: Female
  Weight: 49.9 kg

DRUGS (1)
  1. MIRENA [Suspect]
     Active Substance: LEVONORGESTREL
     Dates: start: 20160418, end: 20180314

REACTIONS (7)
  - Device dislocation [None]
  - Pelvic pain [None]
  - Pelvic inflammatory disease [None]
  - Vaginal haemorrhage [None]
  - Urinary tract infection [None]
  - Abdominal pain [None]
  - Kidney infection [None]

NARRATIVE: CASE EVENT DATE: 20180304
